FAERS Safety Report 18354658 (Version 1)
Quarter: 2020Q4

REPORT INFORMATION
  Report Type: Spontaneous
  Country: US (occurrence: US)
  Receive Date: 20201007
  Receipt Date: 20201007
  Transmission Date: 20210114
  Serious: No
  Sender: FDA-Public Use
  Company Number: US-AMGEN-USASP2020160333

PATIENT
  Age: 83 Year
  Sex: Female

DRUGS (2)
  1. OTEZLA [Suspect]
     Active Substance: APREMILAST
     Indication: ESSENTIAL HYPERTENSION
     Dosage: 30 MILLIGRAM, BID
     Route: 048
     Dates: start: 20190301
  2. PREDNISONE. [Concomitant]
     Active Substance: PREDNISONE
     Dosage: 10 MILLIGRAM

REACTIONS (5)
  - Off label use [Unknown]
  - Essential hypertension [Not Recovered/Not Resolved]
  - Rash [Not Recovered/Not Resolved]
  - Skin irritation [Not Recovered/Not Resolved]
  - Pain [Not Recovered/Not Resolved]

NARRATIVE: CASE EVENT DATE: 20190301
